FAERS Safety Report 12144504 (Version 1)
Quarter: 2016Q1

REPORT INFORMATION
  Report Type: Spontaneous
  Country: US (occurrence: US)
  Receive Date: 20160304
  Receipt Date: 20160304
  Transmission Date: 20160526
  Serious: Yes (Other)
  Sender: FDA-Public Use
  Company Number: US-BAYER-2016-035866

PATIENT
  Age: 64 Year
  Sex: Female
  Weight: 58.97 kg

DRUGS (4)
  1. XANAX [Concomitant]
     Active Substance: ALPRAZOLAM
  2. CIPRO [Suspect]
     Active Substance: CIPROFLOXACIN HYDROCHLORIDE
  3. GELFOAM [Suspect]
     Active Substance: GELATIN\THROMBIN HUMAN
  4. LEVOTHYROXINE. [Concomitant]
     Active Substance: LEVOTHYROXINE

REACTIONS (6)
  - Fibromyalgia [None]
  - Thyroid disorder [None]
  - Antinuclear antibody negative [None]
  - Osteoporosis [None]
  - Antinuclear antibody positive [None]
  - White matter lesion [None]
